FAERS Safety Report 5205947-4 (Version None)
Quarter: 2007Q1

REPORT INFORMATION
  Report Type: 
  Country: None (occurrence: None)
  Receive Date: 20070111
  Receipt Date: 20070102
  Transmission Date: 20070707
  Serious: Yes (Hospitalization, Other)
  Sender: FDA-Public Use
  Company Number: GB-GLAXOSMITHKLINE-B0453265A

PATIENT
  Sex: Male

DRUGS (8)
  1. ACYCLOVIR [Suspect]
     Indication: PROPHYLAXIS
     Dosage: 360MG THREE TIMES PER DAY
     Route: 042
     Dates: start: 20061108, end: 20061113
  2. FLUCLOXACILLIN [Concomitant]
     Indication: SKIN INFECTION
     Dosage: 1G PER DAY
     Route: 042
     Dates: start: 20061107, end: 20061112
  3. GENTAMICIN SULFATE [Concomitant]
     Indication: SEPSIS
     Route: 042
     Dates: start: 20061109, end: 20061113
  4. GRANISETRON [Concomitant]
     Indication: NAUSEA
     Route: 042
     Dates: start: 20061107, end: 20061113
  5. MERCAPTOPURINE [Concomitant]
     Indication: CHEMOTHERAPY
     Route: 048
     Dates: start: 20061102, end: 20061110
  6. MEROPENEM [Concomitant]
     Indication: SEPSIS
     Route: 042
     Dates: start: 20061107, end: 20061113
  7. ORAMORPH SR [Concomitant]
     Indication: PAIN
     Dosage: 5MG AS REQUIRED
     Route: 048
  8. ACETAMINOPHEN [Concomitant]
     Indication: PAIN
     Route: 048
     Dates: start: 20061112

REACTIONS (5)
  - AGGRESSION [None]
  - DYSTONIA [None]
  - HALLUCINATION [None]
  - MENINGITIS [None]
  - SOCIAL AVOIDANT BEHAVIOUR [None]
